FAERS Safety Report 9499105 (Version 1)
Quarter: 2013Q3

REPORT INFORMATION
  Report Type: Spontaneous
  Country: FR (occurrence: FR)
  Receive Date: 20130904
  Receipt Date: 20130904
  Transmission Date: 20140515
  Serious: Yes (Hospitalization)
  Sender: FDA-Public Use
  Company Number: FR-GILEAD-2013-0082760

PATIENT
  Age: 77 Year
  Sex: Female

DRUGS (11)
  1. AMBRISENTAN [Suspect]
     Indication: PULMONARY ARTERIAL HYPERTENSION
     Dosage: 5 MG, QD
     Route: 048
     Dates: start: 20130628
  2. PERINDOPRIL [Suspect]
     Indication: PRODUCT USED FOR UNKNOWN INDICATION
     Dosage: 2 MG, QD
     Route: 048
     Dates: start: 20130626
  3. COUMADINE [Suspect]
     Indication: PULMONARY ARTERIAL HYPERTENSION
     Dosage: 6 MG, QD
     Route: 048
     Dates: start: 20130627, end: 20130811
  4. BETADINE SCRUB [Suspect]
     Indication: ERYSIPELAS
     Dosage: 4 %, QD
     Route: 061
     Dates: start: 20130620, end: 20130712
  5. CLAMOXYL (AMOXICILLIN) [Concomitant]
     Indication: ERYSIPELAS
     Dosage: 3 G, QD
     Route: 065
     Dates: start: 201306, end: 20130712
  6. VASELINE                           /00473501/ [Concomitant]
     Indication: ERYSIPELAS
     Route: 061
     Dates: start: 2013
  7. LEVOTHYROX [Concomitant]
     Indication: HYPOTHYROIDISM
     Route: 048
  8. NEBIVOLOL [Concomitant]
     Indication: HYPERTENSION
     Dosage: UNK
     Route: 048
  9. LASILIX                            /00032601/ [Concomitant]
     Indication: PRODUCT USED FOR UNKNOWN INDICATION
     Dosage: 120 MG, QD
     Route: 048
  10. ECONAZOLE [Concomitant]
     Indication: INTERTRIGO
     Dosage: 2 DF, QD
     Route: 061
     Dates: start: 2013, end: 2013
  11. AMYCOR [Concomitant]
     Indication: INTERTRIGO
     Route: 061
     Dates: start: 2013

REACTIONS (5)
  - Vascular purpura [Not Recovered/Not Resolved]
  - Skin necrosis [Not Recovered/Not Resolved]
  - Erysipelas [Not Recovered/Not Resolved]
  - Left ventricular failure [Unknown]
  - Oedema peripheral [Unknown]
